FAERS Safety Report 11013075 (Version 1)
Quarter: 2015Q2

REPORT INFORMATION
  Report Type: Report from Study
  Country: CA (occurrence: None)
  Receive Date: 20150409
  Receipt Date: 20150409
  Transmission Date: 20150821
  Serious: Yes (Hospitalization)
  Sender: FDA-Public Use
  Company Number: 2014FE02859

PATIENT
  Age: 81 Year
  Sex: Male

DRUGS (13)
  1. ASPIRIN. [Concomitant]
     Active Substance: ASPIRIN
  2. VITAMIN D / 00318501/ (COLECALCIFEROL) [Concomitant]
  3. RASILEZ [Concomitant]
     Active Substance: ALISKIREN
  4. COLACE [Concomitant]
     Active Substance: DOCUSATE SODIUM
  5. CALCIUM [Concomitant]
     Active Substance: CALCIUM
  6. FIRMAGON [Suspect]
     Active Substance: DEGARELIX ACETATE
     Route: 058
     Dates: start: 20120601, end: 20141210
  7. MORPHINE SULFATE. [Concomitant]
     Active Substance: MORPHINE SULFATE
  8. TELMISARTAN HCTZ [Concomitant]
     Active Substance: HYDROCHLOROTHIAZIDE\TELMISARTAN
  9. METFORMIN [Concomitant]
     Active Substance: METFORMIN HYDROCHLORIDE
  10. PREDNISONE. [Concomitant]
     Active Substance: PREDNISONE
  11. ROSUVASTATINA /01588601/ ROSUVASTATIN [Concomitant]
  12. ZYTIGA (ABIRATERONE ACETATE) [Concomitant]
  13. NOVOLIN 30R /00030501/ (INSULIN) [Concomitant]

REACTIONS (5)
  - Loss of consciousness [None]
  - Urinary incontinence [None]
  - Faecal incontinence [None]
  - Asthenia [None]
  - Fall [None]

NARRATIVE: CASE EVENT DATE: 2014
